FAERS Safety Report 5124725-8 (Version None)
Quarter: 2006Q4

REPORT INFORMATION
  Report Type: 
  Country: None (occurrence: None)
  Receive Date: 20061006
  Receipt Date: 20060927
  Transmission Date: 20070319
  Serious: Yes (Hospitalization)
  Sender: FDA-Public Use
  Company Number: 2006-148518-NL

PATIENT
  Age: 87 Year
  Sex: Female

DRUGS (7)
  1. MIRTAZAPINE [Suspect]
     Dosage: 15 MG QD; ORAL
     Route: 048
     Dates: start: 20060811, end: 20060814
  2. ARACHIS OIL [Concomitant]
  3. BISACODYL [Concomitant]
  4. DORZOLAMIDE HCL [Concomitant]
  5. LATANOPROST [Concomitant]
  6. ACETAMINOPHEN [Concomitant]
  7. FORTISIP [Concomitant]

REACTIONS (3)
  - CONFUSIONAL STATE [None]
  - DISORIENTATION [None]
  - INSOMNIA [None]
